FAERS Safety Report 4378856-0 (Version None)
Quarter: 2004Q2

REPORT INFORMATION
  Report Type: 
  Country: None (occurrence: None)
  Receive Date: 20040609
  Receipt Date: 20040525
  Transmission Date: 20050107
  Serious: Yes (Hospitalization)
  Sender: FDA-Public Use
  Company Number: A01200402478

PATIENT
  Age: 52 Year
  Sex: Male

DRUGS (2)
  1. PLAVIX [Suspect]
     Dosage: 75 MG OD
     Route: 048
     Dates: start: 20030101, end: 20031027
  2. ASPIRIN [Concomitant]

REACTIONS (2)
  - AUTOANTIBODY POSITIVE [None]
  - COOMBS POSITIVE HAEMOLYTIC ANAEMIA [None]
